FAERS Safety Report 22604903 (Version 1)
Quarter: 2023Q2

REPORT INFORMATION
  Report Type: Spontaneous
  Country: PT (occurrence: PT)
  Receive Date: 20230615
  Receipt Date: 20230615
  Transmission Date: 20230722
  Serious: Yes (Hospitalization)
  Sender: FDA-Public Use
  Company Number: PT-STRIDES ARCOLAB LIMITED-2023SP009456

PATIENT
  Age: 25 Year
  Sex: Male

DRUGS (13)
  1. MYCOPHENOLATE MOFETIL [Suspect]
     Active Substance: MYCOPHENOLATE MOFETIL
     Indication: Nephrotic syndrome
     Dosage: 1 GRAM, BID
     Route: 065
  2. MYCOPHENOLATE MOFETIL [Suspect]
     Active Substance: MYCOPHENOLATE MOFETIL
     Indication: Glomerulonephritis minimal lesion
  3. MYCOPHENOLATE MOFETIL [Suspect]
     Active Substance: MYCOPHENOLATE MOFETIL
     Indication: Nephropathy toxic
  4. CYCLOSPORINE [Suspect]
     Active Substance: CYCLOSPORINE
     Indication: Nephrotic syndrome
     Dosage: UNK; APPROXIMATELY 20 DAYS
     Route: 065
  5. CYCLOSPORINE [Suspect]
     Active Substance: CYCLOSPORINE
     Indication: Glomerulonephritis minimal lesion
  6. CYCLOSPORINE [Suspect]
     Active Substance: CYCLOSPORINE
     Indication: Nephropathy toxic
  7. WARFARIN [Suspect]
     Active Substance: WARFARIN
     Indication: Anticoagulant therapy
     Dosage: UNK
     Route: 065
  8. RITUXIMAB [Suspect]
     Active Substance: RITUXIMAB
     Indication: Nephrotic syndrome
     Dosage: 1000 MILLIGRAM; RECEIVED 2 DOSES
     Route: 065
  9. RITUXIMAB [Suspect]
     Active Substance: RITUXIMAB
     Indication: Glomerulonephritis minimal lesion
  10. RITUXIMAB [Suspect]
     Active Substance: RITUXIMAB
     Indication: Nephropathy toxic
  11. GENTAMICIN [Suspect]
     Active Substance: GENTAMICIN
     Indication: Nephrotic syndrome
     Dosage: UNK
     Route: 065
  12. GENTAMICIN [Suspect]
     Active Substance: GENTAMICIN
     Indication: Glomerulonephritis minimal lesion
  13. GENTAMICIN [Suspect]
     Active Substance: GENTAMICIN
     Indication: Nephropathy toxic

REACTIONS (3)
  - Acute vestibular syndrome [Unknown]
  - Drug ineffective [Unknown]
  - Off label use [Unknown]
